FAERS Safety Report 19606470 (Version 2)
Quarter: 2022Q4

REPORT INFORMATION
  Report Type: Spontaneous
  Country: GB (occurrence: GB)
  Receive Date: 20210725
  Receipt Date: 20221031
  Transmission Date: 20230112
  Serious: Yes (Other)
  Sender: FDA-Public Use
  Company Number: None

PATIENT
  Age: 73 Year
  Sex: Female
  Weight: 50.2 kg

DRUGS (35)
  1. ALLOPURINOL [Interacting]
     Active Substance: ALLOPURINOL
     Indication: Product used for unknown indication
     Dosage: 30 MG, QD
     Dates: start: 20171104, end: 20171120
  2. ALLOPURINOL [Interacting]
     Active Substance: ALLOPURINOL
     Indication: Product used for unknown indication
     Dosage: 300 MG, QD (THERAPY IS ONGOING)
     Dates: start: 20171120
  3. ALLOPURINOL [Interacting]
     Active Substance: ALLOPURINOL
     Indication: Product used for unknown indication
     Dosage: 300 MG, QD (THERAPY IS ONGOING)
     Dates: start: 20181120
  4. ALLOPURINOL [Interacting]
     Active Substance: ALLOPURINOL
     Indication: Product used for unknown indication
     Dosage: 300 MG, QD (THERAPY IS ONGOING)
     Dates: start: 20171104
  5. BENDROFLUMETHIAZIDE [Suspect]
     Active Substance: BENDROFLUMETHIAZIDE
     Indication: Product used for unknown indication
     Dosage: 2.5 MG, QD
  6. BENDROFLUMETHIAZIDE [Suspect]
     Active Substance: BENDROFLUMETHIAZIDE
     Indication: Product used for unknown indication
     Dosage: 3 MG
  7. BENDROFLUMETHIAZIDE [Suspect]
     Active Substance: BENDROFLUMETHIAZIDE
     Indication: Product used for unknown indication
     Dosage: 3 MG
     Dates: start: 20171103, end: 20171103
  8. BENDROFLUMETHIAZIDE [Suspect]
     Active Substance: BENDROFLUMETHIAZIDE
     Indication: Product used for unknown indication
     Dosage: 1.8 MG/M2Q_CYCLE/1.3 MG/M2 DAILY
     Dates: start: 20171103, end: 20171103
  9. VELCADE [Interacting]
     Active Substance: BORTEZOMIB
     Indication: Plasma cell leukaemia
     Dosage: 1.8 MG;
     Route: 050
     Dates: start: 20171107, end: 201711
  10. VELCADE [Interacting]
     Active Substance: BORTEZOMIB
     Indication: Plasma cell leukaemia
     Route: 050
     Dates: start: 20171110, end: 20171114
  11. VELCADE [Interacting]
     Active Substance: BORTEZOMIB
     Indication: Plasma cell leukaemia
     Route: 050
     Dates: start: 20171103, end: 20171103
  12. VELCADE [Interacting]
     Active Substance: BORTEZOMIB
     Indication: Plasma cell leukaemia
     Dosage: 1.3 MILLIGRAM/SQ. METER, CYCLE INJECTION
     Dates: start: 20171103
  13. VELCADE [Interacting]
     Active Substance: BORTEZOMIB
     Indication: Plasma cell leukaemia
     Dosage: 1.3 MILLIGRAM/SQ. METER, CYCLE INJECTION
     Dates: start: 20171106, end: 20171106
  14. DEXAMETHASONE [Interacting]
     Active Substance: DEXAMETHASONE
     Indication: Product used for unknown indication
     Dosage: 20 MG, QD, ORAL LIQUID
     Dates: start: 20171102, end: 20171106
  15. DEXAMETHASONE [Interacting]
     Active Substance: DEXAMETHASONE
     Indication: Product used for unknown indication
     Dosage: 20 MG, QD, ORAL LIQUID
  16. DEXAMETHASONE [Interacting]
     Active Substance: DEXAMETHASONE
     Indication: Product used for unknown indication
     Dosage: 20 MG, QD
     Dates: start: 20171102, end: 20171106
  17. FENTANYL [Suspect]
     Active Substance: FENTANYL
     Indication: Product used for unknown indication
     Dosage: 12 MG EVERY 1HR; TRANSDERMAL PATCH
     Route: 050
     Dates: start: 20171108
  18. FENTANYL CITRATE [Suspect]
     Active Substance: FENTANYL CITRATE
     Dosage: 12 UG (12 UG/INHAL) UNK;
     Route: 050
     Dates: start: 20171108
  19. MELPHALAN [Interacting]
     Active Substance: MELPHALAN
     Indication: Plasma cell leukaemia
     Dosage: 14 MG, QD
     Dates: start: 20171103, end: 20171103
  20. MELPHALAN [Interacting]
     Active Substance: MELPHALAN
     Indication: Plasma cell leukaemia
     Dosage: 14 MG, QD
     Dates: start: 20171107, end: 20171110
  21. MELPHALAN [Interacting]
     Active Substance: MELPHALAN
     Indication: Plasma cell leukaemia
     Dosage: 14 MG, QD, POWDER AND SOLVENT FOR SOLUTION FOR INFUSION
     Dates: start: 20171103, end: 20171106
  22. MELPHALAN [Interacting]
     Active Substance: MELPHALAN
     Indication: Plasma cell leukaemia
     Dosage: POWDER AND SOLVENT FOR SOLUTION FOR INFUSION
     Dates: start: 20171106, end: 20171106
  23. MELPHALAN [Interacting]
     Active Substance: MELPHALAN
     Indication: Plasma cell leukaemia
     Dosage: POWDER AND SOLVENT FOR SOLUTION FOR INFUSION
     Dates: start: 20171110, end: 20171110
  24. MELPHALAN [Interacting]
     Active Substance: MELPHALAN
     Indication: Plasma cell leukaemia
     Dates: start: 20171114
  25. METOCLOPRAMIDE HYDROCHLORIDE [Suspect]
     Active Substance: METOCLOPRAMIDE HYDROCHLORIDE
     Indication: Product used for unknown indication
     Dosage: 10 MG, PRN; AS NECESSARY
  26. METOCLOPRAMIDE HYDROCHLORIDE [Suspect]
     Active Substance: METOCLOPRAMIDE HYDROCHLORIDE
     Indication: Product used for unknown indication
  27. OMEPRAZOLE [Suspect]
     Active Substance: OMEPRAZOLE
     Indication: Product used for unknown indication
     Dosage: 20 MG, QD (QAM)
     Route: 050
  28. PREDNISONE [Interacting]
     Active Substance: PREDNISONE
     Indication: Plasma cell leukaemia
     Dates: start: 20171106, end: 20171106
  29. PREDNISONE [Interacting]
     Active Substance: PREDNISONE
     Indication: Plasma cell leukaemia
     Dosage: 70 MG, QD (1CYCLE)
     Dates: start: 20171103, end: 20171103
  30. RAMIPRIL [Suspect]
     Active Substance: RAMIPRIL
     Indication: Product used for unknown indication
     Dosage: 10 MG, QD (QAM)
  31. SERTRALINE [Suspect]
     Active Substance: SERTRALINE HYDROCHLORIDE
     Indication: Product used for unknown indication
     Dosage: 50 MG, QD
  32. SODIUM CHLORIDE [Suspect]
     Active Substance: SODIUM CHLORIDE
     Indication: Medication dilution
     Dosage: UNK;
     Route: 050
     Dates: start: 20171107, end: 201711
  33. SODIUM CHLORIDE [Suspect]
     Active Substance: SODIUM CHLORIDE
     Indication: Medication dilution
     Route: 050
     Dates: start: 20171110, end: 20171114
  34. SODIUM CHLORIDE [Suspect]
     Active Substance: SODIUM CHLORIDE
     Indication: Medication dilution
     Route: 050
     Dates: start: 20171103, end: 20171106
  35. SODIUM CHLORIDE [Suspect]
     Active Substance: SODIUM CHLORIDE
     Indication: Medication dilution
     Route: 050
     Dates: start: 20171106, end: 20171106

REACTIONS (15)
  - Disorientation [Recovered/Resolved]
  - Disturbance in social behaviour [Recovered/Resolved]
  - Hallucination [Recovered/Resolved]
  - Abnormal behaviour [Not Recovered/Not Resolved]
  - Paranoia [Recovered/Resolved]
  - Confusional state [Recovered/Resolved]
  - Agitation [Recovered/Resolved]
  - Emotional distress [Not Recovered/Not Resolved]
  - Off label use [Unknown]
  - Product use in unapproved indication [Unknown]
  - Drug interaction [Unknown]
  - Drug abuse [Unknown]
  - Medication error [Unknown]
  - Incorrect route of product administration [Unknown]
  - Emotional distress [Unknown]

NARRATIVE: CASE EVENT DATE: 20171107
